FAERS Safety Report 18533060 (Version 1)
Quarter: 2020Q4

REPORT INFORMATION
  Report Type: Other
  Country: CA (occurrence: CA)
  Receive Date: 20201123
  Receipt Date: 20201123
  Transmission Date: 20210114
  Serious: Yes (Other)
  Sender: FDA-Public Use
  Company Number: CA-CELLTRION INC.-2020CA031789

PATIENT

DRUGS (16)
  1. METFORMIN [Concomitant]
     Active Substance: METFORMIN HYDROCHLORIDE
     Route: 065
  2. MYFORTIC [Concomitant]
     Active Substance: MYCOPHENOLATE SODIUM
  3. VENTOLIN [Concomitant]
     Active Substance: ALBUTEROL SULFATE
  4. D TABS [Concomitant]
     Active Substance: CHOLECALCIFEROL
  5. HYDROXYCHLOROQUINE [Concomitant]
     Active Substance: HYDROXYCHLOROQUINE
  6. METHYLPREDNISOLONE. [Concomitant]
     Active Substance: METHYLPREDNISOLONE
     Indication: PREMEDICATION
     Dosage: 100 MG
     Route: 042
  7. PREDNISONE. [Concomitant]
     Active Substance: PREDNISONE
  8. SEPTRA [Concomitant]
     Active Substance: SULFAMETHOXAZOLE\TRIMETHOPRIM
  9. FLOVENT [Concomitant]
     Active Substance: FLUTICASONE PROPIONATE
  10. NIFEDIPINE. [Concomitant]
     Active Substance: NIFEDIPINE
  11. DEXILANT [Concomitant]
     Active Substance: DEXLANSOPRAZOLE
  12. DIPHENHYDRAMINE HYDROCHLORIDE. [Concomitant]
     Active Substance: DIPHENHYDRAMINE HYDROCHLORIDE
     Indication: PREMEDICATION
     Dosage: 50 MG
     Route: 048
  13. RITUXIMAB (UNKNOWN) [Suspect]
     Active Substance: RITUXIMAB
     Indication: PULMONARY FIBROSIS
     Dosage: 1000 MG, 1 EVERY 15 DAYS
     Route: 042
  14. ACETAMINOPHEN. [Concomitant]
     Active Substance: ACETAMINOPHEN
     Indication: PREMEDICATION
     Dosage: 650 MG
     Route: 048
  15. AVAMYS [Concomitant]
     Active Substance: FLUTICASONE FUROATE
  16. RESOTRAN [Concomitant]
     Active Substance: PRUCALOPRIDE SUCCINATE

REACTIONS (10)
  - Calcinosis [Recovered/Resolved]
  - Infusion related reaction [Recovered/Resolved]
  - Fatigue [Recovered/Resolved]
  - Off label use [Unknown]
  - Blood pressure diastolic increased [Recovered/Resolved]
  - Malaise [Recovered/Resolved]
  - Ill-defined disorder [Recovered/Resolved]
  - Blood pressure diastolic abnormal [Recovered/Resolved]
  - Palpitations [Recovered/Resolved]
  - Dizziness [Recovered/Resolved]
